FAERS Safety Report 10049402 (Version 1)
Quarter: 2014Q2

REPORT INFORMATION
  Report Type: Spontaneous
  Country: US (occurrence: US)
  Receive Date: 20140401
  Receipt Date: 20140401
  Transmission Date: 20141212
  Serious: Yes (Hospitalization, Other)
  Sender: FDA-Public Use
  Company Number: US-SUN PHARMACEUTICAL INDUSTRIES LTD-2014SUN00663

PATIENT
  Age: 52 Year
  Sex: Female

DRUGS (4)
  1. HYDROCHLOROTHIAZIDE 25 MG TABLETS [Suspect]
     Indication: HYPERTENSION
     Dosage: 25 MG, BID
     Route: 065
  2. LISINOPRIL [Concomitant]
     Indication: HYPERTENSION
     Dosage: 80 MG, QD
  3. METOPROLOL [Concomitant]
     Indication: HYPERTENSION
     Dosage: 25 MG, BID
  4. ANTI-RETROVIRAL THERAPY [Concomitant]

REACTIONS (3)
  - Syncope [Unknown]
  - Dehydration [Unknown]
  - Diarrhoea [Unknown]
